FAERS Safety Report 22520924 (Version 3)
Quarter: 2023Q2

REPORT INFORMATION
  Report Type: Spontaneous
  Country: US (occurrence: US)
  Receive Date: 20230605
  Receipt Date: 20230630
  Transmission Date: 20230722
  Serious: Yes (Other)
  Sender: FDA-Public Use
  Company Number: US-NOVEN PHARMACEUTICALS, INC.-2023-NOV-US000557

PATIENT
  Age: 15 Year
  Sex: Male

DRUGS (2)
  1. DAYTRANA [Suspect]
     Active Substance: METHYLPHENIDATE
     Indication: Attention deficit hyperactivity disorder
     Dosage: 40 MG/9 HOURS, (USING 30 MG + 10 MG PATCHES TOGETHER), WEEKENDS
     Route: 062
     Dates: start: 20230527
  2. DAYTRANA [Suspect]
     Active Substance: METHYLPHENIDATE
     Dosage: 30 MG/9 HOURS, WEEKENDS
     Route: 062
     Dates: start: 20230520

REACTIONS (5)
  - Device adhesion issue [Not Recovered/Not Resolved]
  - Product administration error [Not Recovered/Not Resolved]
  - Recalled product administered [Not Recovered/Not Resolved]
  - Off label use [Not Recovered/Not Resolved]
  - No adverse event [Unknown]

NARRATIVE: CASE EVENT DATE: 20230527
